FAERS Safety Report 19037879 (Version 1)
Quarter: 2021Q1

REPORT INFORMATION
  Report Type: Spontaneous
  Country: GB (occurrence: GB)
  Receive Date: 20210322
  Receipt Date: 20210322
  Transmission Date: 20210420
  Serious: Yes (Hospitalization, Other)
  Sender: FDA-Public Use
  Company Number: GB-SCIEGEN-2021SCILIT00272

PATIENT
  Age: 54 Year
  Sex: Male

DRUGS (7)
  1. TAPENTADOL [Suspect]
     Active Substance: TAPENTADOL
     Indication: PAIN
  2. AMITRIPTYLINE [Suspect]
     Active Substance: AMITRIPTYLINE
     Indication: PAIN
     Route: 065
  3. PREGABALIN CAPSULES [Suspect]
     Active Substance: PREGABALIN
     Route: 065
  4. SERTRALINE HYDROCHLORIDE TABLETS [Suspect]
     Active Substance: SERTRALINE HYDROCHLORIDE
     Indication: PAIN
     Route: 065
  5. PREGABALIN CAPSULES [Suspect]
     Active Substance: PREGABALIN
     Indication: PAIN
     Route: 065
  6. TAPENTADOL [Suspect]
     Active Substance: TAPENTADOL
     Indication: ANALGESIC THERAPY
     Route: 065
  7. KETAMINE [Concomitant]
     Active Substance: KETAMINE
     Route: 065

REACTIONS (1)
  - Serotonin syndrome [Recovered/Resolved]
